FAERS Safety Report 20677572 (Version 1)
Quarter: 2022Q2

REPORT INFORMATION
  Report Type: Spontaneous
  Country: AE (occurrence: AE)
  Receive Date: 20220406
  Receipt Date: 20220406
  Transmission Date: 20220720
  Serious: Yes (Other)
  Sender: FDA-Public Use
  Company Number: AE-BEH-2022143644

PATIENT
  Age: 14 Year
  Sex: Male

DRUGS (1)
  1. HUMAN IMMUNOGLOBULIN G [Suspect]
     Active Substance: HUMAN IMMUNOGLOBULIN G
     Indication: Guillain-Barre syndrome
     Dosage: 0.4GM/KG/DAY FOR 5 DAYS
     Route: 042

REACTIONS (2)
  - Drug ineffective [Unknown]
  - Guillain-Barre syndrome [Unknown]
